FAERS Safety Report 21626827 (Version 1)
Quarter: 2022Q4

REPORT INFORMATION
  Report Type: Spontaneous
  Country: US (occurrence: None)
  Receive Date: 20221122
  Receipt Date: 20221122
  Transmission Date: 20230113
  Serious: No
  Sender: FDA-Public Use
  Company Number: US-ROCHE-3175044

PATIENT
  Age: 8 Year
  Sex: Male

DRUGS (1)
  1. EVRYSDI [Suspect]
     Active Substance: RISDIPLAM
     Indication: Product used for unknown indication
     Route: 065
     Dates: start: 202202

REACTIONS (3)
  - Abdominal pain upper [Recovered/Resolved]
  - Decreased appetite [Unknown]
  - Product storage error [Unknown]

NARRATIVE: CASE EVENT DATE: 20220904
